FAERS Safety Report 10901923 (Version 2)
Quarter: 2015Q2

REPORT INFORMATION
  Report Type: Spontaneous
  Country: US (occurrence: US)
  Receive Date: 20150310
  Receipt Date: 20150513
  Transmission Date: 20150821
  Serious: No
  Sender: FDA-Public Use
  Company Number: US-GLAXOSMITHKLINE-US2015GSK011550

PATIENT
  Sex: Male

DRUGS (2)
  1. VOTRIENT [Suspect]
     Active Substance: PAZOPANIB HYDROCHLORIDE
     Indication: KAPOSI^S SARCOMA
     Dosage: 800 MG, QD
     Route: 048
     Dates: start: 201407
  2. VOTRIENT [Suspect]
     Active Substance: PAZOPANIB HYDROCHLORIDE
     Dosage: 400 MG, QD

REACTIONS (3)
  - Diarrhoea [Unknown]
  - Adverse drug reaction [Unknown]
  - Dysgeusia [Unknown]
